FAERS Safety Report 25602644 (Version 1)
Quarter: 2025Q3

REPORT INFORMATION
  Report Type: Spontaneous
  Country: EU (occurrence: EU)
  Receive Date: 20250724
  Receipt Date: 20250724
  Transmission Date: 20251021
  Serious: Yes (Hospitalization, Disabling, Congenital Anomaly)
  Sender: MYLAN
  Company Number: EU-EMB-M202400873-1

PATIENT
  Sex: Male
  Weight: 3.2 kg

DRUGS (16)
  1. VENLAFAXINE [Suspect]
     Active Substance: VENLAFAXINE HYDROCHLORIDE
     Indication: Product used for unknown indication
     Dosage: 150 MILLIGRAM, QD
     Dates: start: 202211, end: 202308
  2. VENLAFAXINE [Suspect]
     Active Substance: VENLAFAXINE HYDROCHLORIDE
     Dosage: 150 MILLIGRAM, QD
     Dates: start: 202211, end: 202308
  3. VENLAFAXINE [Suspect]
     Active Substance: VENLAFAXINE HYDROCHLORIDE
     Dosage: 150 MILLIGRAM, QD
     Route: 064
     Dates: start: 202211, end: 202308
  4. VENLAFAXINE [Suspect]
     Active Substance: VENLAFAXINE HYDROCHLORIDE
     Dosage: 150 MILLIGRAM, QD
     Route: 064
     Dates: start: 202211, end: 202308
  5. VENLAFAXINE [Suspect]
     Active Substance: VENLAFAXINE HYDROCHLORIDE
     Dosage: 150 MILLIGRAM, QD
     Dates: start: 202211, end: 202308
  6. VENLAFAXINE [Suspect]
     Active Substance: VENLAFAXINE HYDROCHLORIDE
     Dosage: 150 MILLIGRAM, QD
     Dates: start: 202211, end: 202308
  7. VENLAFAXINE [Suspect]
     Active Substance: VENLAFAXINE HYDROCHLORIDE
     Dosage: 150 MILLIGRAM, QD
     Route: 064
     Dates: start: 202211, end: 202308
  8. VENLAFAXINE [Suspect]
     Active Substance: VENLAFAXINE HYDROCHLORIDE
     Dosage: 150 MILLIGRAM, QD
     Route: 064
     Dates: start: 202211, end: 202308
  9. LORAZEPAM [Suspect]
     Active Substance: LORAZEPAM
     Indication: Product used for unknown indication
     Dosage: 0.5 MILLIGRAM, BID (FROM THE BEGINNING UNTIL GESTATIONAL WEEK 17, DECREASED STEP BY STEP)
  10. LORAZEPAM [Suspect]
     Active Substance: LORAZEPAM
     Dosage: 0.5 MILLIGRAM, BID (FROM THE BEGINNING UNTIL GESTATIONAL WEEK 17, DECREASED STEP BY STEP)
  11. LORAZEPAM [Suspect]
     Active Substance: LORAZEPAM
     Dosage: 0.5 MILLIGRAM, BID (FROM THE BEGINNING UNTIL GESTATIONAL WEEK 17, DECREASED STEP BY STEP)
     Route: 064
  12. LORAZEPAM [Suspect]
     Active Substance: LORAZEPAM
     Dosage: 0.5 MILLIGRAM, BID (FROM THE BEGINNING UNTIL GESTATIONAL WEEK 17, DECREASED STEP BY STEP)
     Route: 064
  13. LORAZEPAM [Suspect]
     Active Substance: LORAZEPAM
     Dosage: 0.5 MILLIGRAM, BID (FROM THE BEGINNING UNTIL GESTATIONAL WEEK 17, DECREASED STEP BY STEP)
  14. LORAZEPAM [Suspect]
     Active Substance: LORAZEPAM
     Dosage: 0.5 MILLIGRAM, BID (FROM THE BEGINNING UNTIL GESTATIONAL WEEK 17, DECREASED STEP BY STEP)
  15. LORAZEPAM [Suspect]
     Active Substance: LORAZEPAM
     Dosage: 0.5 MILLIGRAM, BID (FROM THE BEGINNING UNTIL GESTATIONAL WEEK 17, DECREASED STEP BY STEP)
     Route: 064
  16. LORAZEPAM [Suspect]
     Active Substance: LORAZEPAM
     Dosage: 0.5 MILLIGRAM, BID (FROM THE BEGINNING UNTIL GESTATIONAL WEEK 17, DECREASED STEP BY STEP)
     Route: 064

REACTIONS (2)
  - Talipes [Recovered/Resolved with Sequelae]
  - Foetal exposure during pregnancy [Unknown]
